FAERS Safety Report 6739380-0 (Version None)
Quarter: 2010Q2

REPORT INFORMATION
  Report Type: 
  Country: None (occurrence: None)
  Receive Date: 20100525
  Receipt Date: 20100520
  Transmission Date: 20101027
  Serious: Yes (Hospitalization)
  Sender: FDA-Public Use
  Company Number: CN-ROXANE LABORATORIES, INC.-2010-RO-00614RO

PATIENT
  Age: 53 Year
  Sex: Male

DRUGS (4)
  1. PREDNISONE [Suspect]
     Indication: RHEUMATOID ARTHRITIS
     Dosage: 10 MG
  2. METHOTREXATE [Suspect]
     Indication: RHEUMATOID ARTHRITIS
     Route: 042
  3. MELOXICAM [Suspect]
     Indication: RHEUMATOID ARTHRITIS
     Dosage: 15 MG
  4. BAFULIN [Suspect]
     Indication: RHEUMATOID ARTHRITIS

REACTIONS (1)
  - APLASTIC ANAEMIA [None]
